FAERS Safety Report 8256189-X (Version None)
Quarter: 2012Q2

REPORT INFORMATION
  Report Type: 
  Country: None (occurrence: None)
  Receive Date: 20120403
  Receipt Date: 20120330
  Transmission Date: 20120825
  Serious: Yes (Other)
  Sender: FDA-Public Use
  Company Number: DE-BAYER-2012-028842

PATIENT
  Age: 78 Year
  Sex: Male

DRUGS (3)
  1. BRIMONIDINE TARTRATE [Concomitant]
     Indication: GLAUCOMA
     Route: 047
  2. LEVITRA [Suspect]
     Indication: PRODUCT USED FOR UNKNOWN INDICATION
     Dosage: LOW FREQUENCY AS NEEDED
     Route: 048
     Dates: start: 20110301
  3. LATANOPROST [Concomitant]
     Indication: GLAUCOMA
     Route: 047

REACTIONS (4)
  - GLAUCOMA [None]
  - HEADACHE [None]
  - MYALGIA [None]
  - INTRAOCULAR PRESSURE DECREASED [None]
